FAERS Safety Report 4370218-5 (Version None)
Quarter: 2004Q2

REPORT INFORMATION
  Report Type: 
  Country: None (occurrence: None)
  Receive Date: 20040527
  Receipt Date: 20040524
  Transmission Date: 20050107
  Serious: Yes (Other)
  Sender: FDA-Public Use
  Company Number: 200310496BYL

PATIENT
  Age: 67 Year
  Sex: Male
  Weight: 57.3 kg

DRUGS (1)
  1. GLUCOBAY [Suspect]
     Indication: DIABETES MELLITUS
     Dosage: 100 MG, TID, ORAL
     Route: 048
     Dates: start: 20030522, end: 20031108

REACTIONS (1)
  - THROMBOCYTOPENIA [None]
